FAERS Safety Report 6939808-7 (Version None)
Quarter: 2010Q3

REPORT INFORMATION
  Report Type: 
  Country: None (occurrence: None)
  Receive Date: 20100825
  Receipt Date: 20100813
  Transmission Date: 20110219
  Serious: No
  Sender: FDA-Public Use
  Company Number: US-BIOGENIDEC-2010BI028396

PATIENT
  Age: 38 Year
  Sex: Female

DRUGS (3)
  1. AVONEX [Suspect]
     Indication: MULTIPLE SCLEROSIS
     Route: 030
     Dates: start: 20050615, end: 20060501
  2. AVONEX [Suspect]
     Route: 030
     Dates: start: 20060712, end: 20080609
  3. AVONEX [Suspect]
     Route: 030
     Dates: start: 20081130

REACTIONS (1)
  - BURNING SENSATION [None]
